FAERS Safety Report 12665930 (Version 1)
Quarter: 2016Q3

REPORT INFORMATION
  Report Type: Spontaneous
  Country: US (occurrence: US)
  Receive Date: 20160818
  Receipt Date: 20160818
  Transmission Date: 20161109
  Serious: No
  Sender: FDA-Public Use
  Company Number: US-ALLERGAN-1663717US

PATIENT
  Sex: Female

DRUGS (1)
  1. KYBELLA [Suspect]
     Active Substance: DEOXYCHOLIC ACID
     Indication: PRODUCT USED FOR UNKNOWN INDICATION
     Dosage: UNK, SINGLE
     Route: 058

REACTIONS (5)
  - Injection site scab [Recovered/Resolved]
  - Skin burning sensation [Unknown]
  - Skin swelling [Not Recovered/Not Resolved]
  - Scab [Recovered/Resolved]
  - Pain of skin [Not Recovered/Not Resolved]
